FAERS Safety Report 8238393-X (Version None)
Quarter: 2012Q1

REPORT INFORMATION
  Report Type: 
  Country: None (occurrence: None)
  Receive Date: 20120327
  Receipt Date: 20120319
  Transmission Date: 20120608
  Serious: Yes (Death)
  Sender: FDA-Public Use
  Company Number: AT-TEVA-328921ISR

PATIENT
  Age: 72 Year
  Sex: Female

DRUGS (6)
  1. BISOPROLOL FUMARATE [Concomitant]
     Indication: ATRIAL FIBRILLATION
     Route: 065
  2. PHENPROCOUMON [Concomitant]
     Indication: HYPERCOAGULATION
     Route: 048
  3. PHENPROCOUMON [Concomitant]
     Indication: THROMBOSIS
     Route: 048
  4. PHENPROCOUMON [Concomitant]
     Indication: ATRIAL FIBRILLATION
     Route: 048
  5. ASPIRIN [Concomitant]
     Indication: ATRIAL FIBRILLATION
     Route: 065
  6. DEXAMETHASONE [Suspect]
     Indication: CENTRAL NERVOUS SYSTEM LYMPHOMA
     Dosage: 32 MILLIGRAM;
     Route: 065

REACTIONS (5)
  - ENDOCARDITIS [None]
  - SEPSIS [None]
  - ERYSIPELAS [None]
  - SKIN LESION [None]
  - MULTI-ORGAN FAILURE [None]
